FAERS Safety Report 7221517-0 (Version None)
Quarter: 2010Q4

REPORT INFORMATION
  Report Type: 
  Country: None (occurrence: None)
  Receive Date: 20101230
  Receipt Date: 20101216
  Transmission Date: 20110411
  Serious: Yes (Death)
  Sender: FDA-Public Use
  Company Number: OPIR20100050

PATIENT
  Age: 19 Year
  Sex: Male
  Weight: 81.6475 kg

DRUGS (5)
  1. OPANA [Suspect]
     Indication: DRUG ABUSE
  2. ALPRAZOLAM [Suspect]
     Indication: DRUG ABUSE
  3. ETHANOL(ETHANOL)(SOLUTION) [Suspect]
     Indication: ALCOHOL ABUSE
     Dosage: ORAL
     Route: 048
  4. HYDROCODONE BITARTRATE [Suspect]
     Indication: DRUG ABUSE
  5. MEPHEDRONE [Suspect]
     Indication: DRUG ABUSE

REACTIONS (13)
  - ASPHYXIA [None]
  - CARDIAC HYPERTROPHY [None]
  - DRUG ABUSE [None]
  - DRUG TOXICITY [None]
  - EXCORIATION [None]
  - EXTRAVASATION [None]
  - EXTRAVASATION BLOOD [None]
  - HEPATIC CONGESTION [None]
  - LEFT VENTRICULAR HYPERTROPHY [None]
  - MUSCLE HAEMORRHAGE [None]
  - NERVOUS SYSTEM DISORDER [None]
  - PULMONARY CONGESTION [None]
  - PULMONARY OEDEMA [None]
